FAERS Safety Report 6669841-4 (Version None)
Quarter: 2010Q2

REPORT INFORMATION
  Report Type: 
  Country: None (occurrence: None)
  Receive Date: 20100406
  Receipt Date: 20100120
  Transmission Date: 20101027
  Serious: No
  Sender: FDA-Public Use
  Company Number: US-ALLERGAN-0909863US

PATIENT
  Age: 55 Year
  Sex: Female

DRUGS (4)
  1. LATISSE [Suspect]
     Indication: GROWTH OF EYELASHES
     Dosage: UNK, QAM
     Route: 061
     Dates: end: 20090618
  2. LATISSE [Suspect]
     Dosage: UNK, QAM
     Route: 061
     Dates: start: 20090702
  3. XANAX [Concomitant]
     Dosage: UNK, PRN
  4. IMITREX [Concomitant]
     Dosage: UNK, PRN

REACTIONS (4)
  - DRUG INEFFECTIVE [None]
  - HAIR GROWTH ABNORMAL [None]
  - INAPPROPRIATE SCHEDULE OF DRUG ADMINISTRATION [None]
  - MADAROSIS [None]
